FAERS Safety Report 16741483 (Version 1)
Quarter: 2019Q3

REPORT INFORMATION
  Report Type: Spontaneous
  Country: US (occurrence: US)
  Receive Date: 20190709
  Receipt Date: 20190709
  Transmission Date: 20191005
  Serious: No
  Sender: FDA-Public Use
  Company Number: None

PATIENT
  Age: 70 Year
  Sex: Female
  Weight: 91.63 kg

DRUGS (3)
  1. REPATHA [Suspect]
     Active Substance: EVOLOCUMAB
     Indication: MENOPAUSAL SYMPTOMS
     Dosage: INJECT 140MG  SUBCUTANEOUSLY EVERY 2 WEEKS AS DIRECTED
     Route: 058
     Dates: start: 201801
  2. REPATHA [Suspect]
     Active Substance: EVOLOCUMAB
     Indication: DRUG THERAPY
     Dosage: INJECT 140MG  SUBCUTANEOUSLY EVERY 2 WEEKS AS DIRECTED
     Route: 058
     Dates: start: 201801
  3. REPATHA [Suspect]
     Active Substance: EVOLOCUMAB
     Indication: TYPE V HYPERLIPIDAEMIA
     Dosage: INJECT 140MG  SUBCUTANEOUSLY EVERY 2 WEEKS AS DIRECTED
     Route: 058
     Dates: start: 201801

REACTIONS (1)
  - Influenza [None]
